FAERS Safety Report 21298694 (Version 3)
Quarter: 2022Q4

REPORT INFORMATION
  Report Type: Spontaneous
  Country: JP (occurrence: JP)
  Receive Date: 20220906
  Receipt Date: 20221202
  Transmission Date: 20230113
  Serious: Yes (Other)
  Sender: FDA-Public Use
  Company Number: JP-ELI_LILLY_AND_COMPANY-JP202208015455

PATIENT
  Age: 64 Year
  Sex: Male

DRUGS (9)
  1. NECITUMUMAB [Suspect]
     Active Substance: NECITUMUMAB
     Indication: Squamous cell carcinoma of lung
     Dosage: 800 MG, OTHER
     Route: 041
     Dates: start: 20220801
  2. GEMZAR [Suspect]
     Active Substance: GEMCITABINE HYDROCHLORIDE
     Indication: Squamous cell carcinoma of lung
     Dosage: 2360 MG, OTHER
     Route: 041
     Dates: start: 20220801, end: 20221019
  3. CISPLATIN [Concomitant]
     Active Substance: CISPLATIN
     Dosage: 140 MG, OTHER
     Route: 041
     Dates: start: 20220801, end: 20221019
  4. MAGNESIUM SULFATE [Concomitant]
     Active Substance: MAGNESIUM SULFATE
     Indication: Electrolyte substitution therapy
     Dosage: UNK
     Route: 065
     Dates: start: 20220801
  5. AMLODIPINE [Concomitant]
     Active Substance: AMLODIPINE BESYLATE
     Indication: Hypertension
     Dosage: UNK
     Route: 048
     Dates: start: 20200728
  6. JANUVIA [Concomitant]
     Active Substance: SITAGLIPTIN PHOSPHATE
     Indication: Diabetes mellitus
     Dosage: UNK
     Route: 048
     Dates: start: 20200802
  7. TELMISARTAN [Concomitant]
     Active Substance: TELMISARTAN
     Indication: Hypertension
     Dosage: UNK
     Route: 048
     Dates: start: 20200802
  8. DULOXETINE [Concomitant]
     Active Substance: DULOXETINE
     Indication: Nervous system disorder
     Dosage: UNK
     Route: 048
     Dates: start: 20220420
  9. ZOLPIDEM TARTRATE [Concomitant]
     Active Substance: ZOLPIDEM TARTRATE
     Indication: Insomnia
     Dosage: UNK
     Route: 048
     Dates: start: 20210712

REACTIONS (4)
  - Platelet count decreased [Not Recovered/Not Resolved]
  - Hypertension [Unknown]
  - Rash [Recovered/Resolved]
  - Erythema [Recovered/Resolved]

NARRATIVE: CASE EVENT DATE: 20220806
